FAERS Safety Report 5155531-6 (Version None)
Quarter: 2006Q4

REPORT INFORMATION
  Report Type: 
  Country: None (occurrence: None)
  Receive Date: 20061114
  Receipt Date: 20061108
  Transmission Date: 20070319
  Serious: Yes (Hospitalization)
  Sender: FDA-Public Use
  Company Number: S06-USA-04730-01

PATIENT
  Age: 44 Year
  Sex: Female

DRUGS (6)
  1. LEXAPRO [Suspect]
     Indication: GENERALISED ANXIETY DISORDER
     Dosage: 10 MG QD PO
     Route: 048
     Dates: start: 20060822, end: 20060906
  2. LEXAPRO [Suspect]
     Indication: MOOD SWINGS
     Dosage: 10 MG QD PO
     Route: 048
     Dates: start: 20060822, end: 20060906
  3. AZMACORT [Concomitant]
  4. RESTORIL [Concomitant]
  5. VICODIN [Concomitant]
  6. VALIUM [Concomitant]

REACTIONS (2)
  - DYSARTHRIA [None]
  - HYPOAESTHESIA [None]
